FAERS Safety Report 12619806 (Version 1)
Quarter: 2016Q3

REPORT INFORMATION
  Report Type: Spontaneous
  Country: SE (occurrence: SE)
  Receive Date: 20160803
  Receipt Date: 20160803
  Transmission Date: 20161109
  Serious: Yes (Hospitalization, Other)
  Sender: FDA-Public Use
  Company Number: SE-PFIZER INC-2016366235

PATIENT
  Age: 36 Year
  Sex: Male

DRUGS (2)
  1. XANOR [Suspect]
     Active Substance: ALPRAZOLAM
     Dates: start: 20160720, end: 20160720
  2. SUBUTEX [Suspect]
     Active Substance: BUPRENORPHINE HYDROCHLORIDE

REACTIONS (5)
  - Unresponsive to stimuli [Recovered/Resolved]
  - Somnolence [Recovered/Resolved]
  - Alcohol poisoning [Recovered/Resolved]
  - Agitation [Recovered/Resolved]
  - Toxicity to various agents [Recovered/Resolved]

NARRATIVE: CASE EVENT DATE: 20160720
